FAERS Safety Report 14202657 (Version 1)
Quarter: 2017Q4

REPORT INFORMATION
  Report Type: Spontaneous
  Country: JP (occurrence: JP)
  Receive Date: 20171118
  Receipt Date: 20171118
  Transmission Date: 20180321
  Serious: Yes (Other)
  Sender: FDA-Public Use
  Company Number: JP-SUN PHARMACEUTICAL INDUSTRIES LTD-2017RR-154864

PATIENT
  Age: 72 Year
  Sex: Male
  Weight: 62 kg

DRUGS (4)
  1. CARBOPLATIN. [Suspect]
     Active Substance: CARBOPLATIN
     Indication: LUNG ADENOCARCINOMA STAGE IV
     Dosage: AUC 5
     Route: 065
  2. PEMETREXED. [Suspect]
     Active Substance: PEMETREXED
     Indication: LUNG ADENOCARCINOMA STAGE IV
  3. PEMETREXED. [Suspect]
     Active Substance: PEMETREXED
     Indication: METASTASES TO PITUITARY GLAND
     Dosage: 500 MG/M2
     Route: 065
  4. CARBOPLATIN. [Suspect]
     Active Substance: CARBOPLATIN
     Indication: METASTASES TO PITUITARY GLAND

REACTIONS (3)
  - Pancytopenia [Unknown]
  - Bone marrow failure [Unknown]
  - Drug ineffective [Unknown]
